FAERS Safety Report 15229657 (Version 1)
Quarter: 2018Q3

REPORT INFORMATION
  Report Type: Spontaneous
  Country: US (occurrence: US)
  Receive Date: 20180802
  Receipt Date: 20180802
  Transmission Date: 20181010
  Serious: No
  Sender: FDA-Public Use
  Company Number: US-TEVA-2018-US-935024

PATIENT
  Sex: Male

DRUGS (1)
  1. ADDERALL [Suspect]
     Active Substance: AMPHETAMINE ASPARTATE\AMPHETAMINE SULFATE\DEXTROAMPHETAMINE SACCHARATE\DEXTROAMPHETAMINE SULFATE
     Route: 065

REACTIONS (10)
  - Feeling hot [Unknown]
  - Nausea [Unknown]
  - Urticaria [Unknown]
  - Drug effect decreased [Unknown]
  - Irritability [Unknown]
  - Tremor [Unknown]
  - Anxiety [Unknown]
  - Dehydration [Unknown]
  - Condition aggravated [Unknown]
  - Disturbance in attention [Unknown]
